FAERS Safety Report 11689473 (Version 2)
Quarter: 2016Q1

REPORT INFORMATION
  Report Type: Spontaneous
  Country: US (occurrence: US)
  Receive Date: 20151102
  Receipt Date: 20160128
  Transmission Date: 20160525
  Serious: Yes (Death, Other)
  Sender: FDA-Public Use
  Company Number: US-ENDO PHARMACEUTICALS INC.-2015-003703

PATIENT
  Age: 57 Year
  Sex: Male
  Weight: 102.15 kg

DRUGS (2)
  1. ANDROGEL [Suspect]
     Active Substance: TESTOSTERONE
     Indication: ANDROGEN REPLACEMENT THERAPY
     Route: 065
     Dates: start: 20031217, end: 20120104
  2. TESTIM [Suspect]
     Active Substance: TESTOSTERONE
     Indication: ANDROGEN REPLACEMENT THERAPY
     Route: 062
     Dates: start: 20050118, end: 20060531

REACTIONS (8)
  - Left ventricular hypertrophy [None]
  - Coronary artery disease [Fatal]
  - Idiopathic urticaria [Unknown]
  - Dyspnoea [Unknown]
  - Cardiac disorder [Fatal]
  - Myocardial infarction [Not Recovered/Not Resolved]
  - Atherosclerotic plaque rupture [None]
  - Product quality issue [None]

NARRATIVE: CASE EVENT DATE: 20110521
